FAERS Safety Report 6836079-7 (Version None)
Quarter: 2010Q3

REPORT INFORMATION
  Report Type: 
  Country: None (occurrence: None)
  Receive Date: 20100713
  Receipt Date: 20100706
  Transmission Date: 20110219
  Serious: Yes (Hospitalization)
  Sender: FDA-Public Use
  Company Number: US-ROCHE-654570

PATIENT
  Sex: Female
  Weight: 96 kg

DRUGS (14)
  1. BEVACIZUMAB [Suspect]
     Dosage: FORM: VIALS; DOSE LEVEL: 15 MG/KG; LAST DOSE PRIOR TO SAE: 17 AUGUST 2009
     Route: 042
     Dates: start: 20090706
  2. TRASTUZUMAB [Suspect]
     Dosage: DOSE LEVEL: 6 MG/KG. LAST DOSE PRIOR TO SAE: 17 AUGUST 2009. FORM: VIALS
     Route: 042
     Dates: start: 20090706
  3. DOCETAXEL [Suspect]
     Dosage: DOSE LEVEL: 75 MG/M2. LAST DOSE PRIOR TO SAE: 17 AUGUST 2009. DOSE FORM: VIALS
     Route: 042
     Dates: start: 20090706
  4. CARBOPLATIN [Suspect]
     Dosage: DOSE LEVEL: 06 AUC. DOSE FORM: VIALS. LAST DOSE PRIOR TO SAE: 17 AUGUST 2009
     Route: 042
     Dates: start: 20090706
  5. CARBOPLATIN [Suspect]
     Route: 042
     Dates: start: 20090817
  6. VALSARTAN [Concomitant]
  7. HYDROCHLOROTHIAZIDE [Concomitant]
  8. ATIVAN [Concomitant]
     Dates: start: 20090806
  9. PROCHLORPERAZINE [Concomitant]
     Dates: start: 20090708
  10. COLACE [Concomitant]
     Dates: start: 20090827
  11. LUNESTA [Concomitant]
     Dates: start: 20090827
  12. MAALOX [Concomitant]
     Dates: start: 20090716
  13. NEXIUM [Concomitant]
     Dates: start: 20090101
  14. MILK OF MAGNESIA TAB [Concomitant]
     Dates: start: 20090827

REACTIONS (2)
  - GASTRIC HAEMORRHAGE [None]
  - GASTRITIS [None]
